FAERS Safety Report 23443965 (Version 1)
Quarter: 2024Q1

REPORT INFORMATION
  Report Type: Spontaneous
  Country: JP (occurrence: JP)
  Receive Date: 20240125
  Receipt Date: 20240125
  Transmission Date: 20240409
  Serious: Yes (Other)
  Sender: FDA-Public Use
  Company Number: JP-SUN PHARMACEUTICAL INDUSTRIES LTD-2024RR-428085

PATIENT
  Age: 75 Year
  Sex: Female

DRUGS (4)
  1. TETRABENAZINE [Suspect]
     Active Substance: TETRABENAZINE
     Indication: Chorea
     Dosage: UNK
     Route: 048
  2. MEMANTINE [Suspect]
     Active Substance: MEMANTINE
     Indication: Huntington^s disease
     Dosage: 10 MILLIGRAM, DAILY
     Route: 065
  3. MEMANTINE [Suspect]
     Active Substance: MEMANTINE
     Dosage: 5 MILLIGRAM, DAILY
     Route: 065
  4. DONEPEZIL [Suspect]
     Active Substance: DONEPEZIL
     Indication: Huntington^s disease
     Dosage: UNK
     Route: 065

REACTIONS (5)
  - Nausea [Unknown]
  - Fatigue [Unknown]
  - Therapeutic response increased [Recovering/Resolving]
  - Therapeutic product effect incomplete [Unknown]
  - Irritability [Unknown]
